FAERS Safety Report 15901496 (Version 1)
Quarter: 2019Q1

REPORT INFORMATION
  Report Type: Spontaneous
  Country: US (occurrence: US)
  Receive Date: 20190201
  Receipt Date: 20190201
  Transmission Date: 20190417
  Serious: Yes (Other)
  Sender: FDA-Public Use
  Company Number: None

PATIENT
  Age: 53 Year
  Sex: Male
  Weight: 60.3 kg

DRUGS (8)
  1. ARIPIPRAZOLE. [Suspect]
     Active Substance: ARIPIPRAZOLE
     Indication: SCHIZOAFFECTIVE DISORDER
     Route: 048
     Dates: start: 20180614, end: 20190129
  2. SYMBICORT 160/4.5 MCG INH [Concomitant]
     Dates: start: 20181230
  3. LEVOCETIRIZINE 5 MG [Concomitant]
     Active Substance: LEVOCETIRIZINE
     Dates: start: 20180614, end: 20180714
  4. TRAZODONE [Concomitant]
     Active Substance: TRAZODONE HYDROCHLORIDE
     Dates: start: 20181119, end: 20190119
  5. FLUOXETINE [Concomitant]
     Active Substance: FLUOXETINE HYDROCHLORIDE
     Dates: start: 20180614, end: 20180914
  6. FOLIC ACID 1 MG [Concomitant]
     Dates: start: 20181230
  7. PROVENTIL HFA INH [Concomitant]
     Dates: start: 20181230
  8. THIAMINE 100 MG [Concomitant]
     Dates: start: 20181230

REACTIONS (1)
  - Deep vein thrombosis [None]

NARRATIVE: CASE EVENT DATE: 20190124
